FAERS Safety Report 14740575 (Version 1)
Quarter: 2018Q2

REPORT INFORMATION
  Report Type: Other
  Country: US (occurrence: US)
  Receive Date: 20180410
  Receipt Date: 20180410
  Transmission Date: 20180711
  Serious: Yes (Death, Life-Threatening, Hospitalization)
  Sender: FDA-Public Use
  Company Number: US-VELOXIS PHARMACEUTICALS-2045451

PATIENT
  Age: 68 Year
  Sex: Female

DRUGS (4)
  1. CYCLOSPORIN [Suspect]
     Active Substance: CYCLOSPORINE
  2. TRIMETHOPRIM SULFAMETHOXAZOLE [Suspect]
     Active Substance: SULFAMETHOXAZOLE\TRIMETHOPRIM
  3. ENVARSUS XR [Suspect]
     Active Substance: TACROLIMUS
     Indication: LIVER TRANSPLANT
  4. MYCOPHENOLATE MOFETIL. [Suspect]
     Active Substance: MYCOPHENOLATE MOFETIL

REACTIONS (8)
  - CSF virus identified [Not Recovered/Not Resolved]
  - Death [Fatal]
  - Seizure [Unknown]
  - Mental status changes [Unknown]
  - Graft versus host disease [Not Recovered/Not Resolved]
  - Pancytopenia [Not Recovered/Not Resolved]
  - Leukopenia [Not Recovered/Not Resolved]
  - Intentional product use issue [Unknown]
